FAERS Safety Report 18314522 (Version 2)
Quarter: 2020Q4

REPORT INFORMATION
  Report Type: Spontaneous
  Country: US (occurrence: US)
  Receive Date: 20200925
  Receipt Date: 20201002
  Transmission Date: 20210113
  Serious: Yes (Death, Life-Threatening, Other)
  Sender: FDA-Public Use
  Company Number: US-GILEAD-2020-0496388

PATIENT
  Age: 74 Year
  Sex: Male
  Weight: 119 kg

DRUGS (36)
  1. CEFTRIAXONE. [Concomitant]
     Active Substance: CEFTRIAXONE
  2. FENTANYL. [Concomitant]
     Active Substance: FENTANYL
  3. ALBUMIN [Concomitant]
     Active Substance: ALBUMIN HUMAN
  4. AZITHROMYCIN ANHYDROUS. [Concomitant]
     Active Substance: AZITHROMYCIN ANHYDROUS
  5. CEFEPIME [Concomitant]
     Active Substance: CEFEPIME HYDROCHLORIDE
  6. GLUCOSE [Concomitant]
     Active Substance: DEXTROSE
  7. NOVOLIN R [Concomitant]
     Active Substance: INSULIN HUMAN
  8. LABETALOL [Concomitant]
     Active Substance: LABETALOL\LABETALOL HYDROCHLORIDE
  9. LEVOPHED [Concomitant]
     Active Substance: NOREPINEPHRINE BITARTRATE
  10. PROPOFOL. [Concomitant]
     Active Substance: PROPOFOL
  11. AMIODARONE [Concomitant]
     Active Substance: AMIODARONE
     Dosage: 100MG, 100MG, 250MG
     Route: 042
     Dates: start: 20200912, end: 20200912
  12. ASCORBIC ACID. [Concomitant]
     Active Substance: ASCORBIC ACID
  13. LOVENOX [Concomitant]
     Active Substance: ENOXAPARIN SODIUM
  14. IMDUR [Concomitant]
     Active Substance: ISOSORBIDE MONONITRATE
  15. PROTONIX [OMEPRAZOLE] [Concomitant]
     Active Substance: OMEPRAZOLE
  16. SODIUM BICARBONATE. [Concomitant]
     Active Substance: SODIUM BICARBONATE
  17. REMDESIVIR. [Suspect]
     Active Substance: REMDESIVIR
     Indication: COVID-19
     Dosage: 200 MG, QD
     Route: 042
     Dates: start: 20200910, end: 20200910
  18. REMDESIVIR. [Suspect]
     Active Substance: REMDESIVIR
     Dosage: 100 MG, QD
     Route: 042
     Dates: start: 20200911, end: 20200914
  19. ACETAMINOPHEN. [Concomitant]
     Active Substance: ACETAMINOPHEN
  20. DEXAMETHASONE. [Concomitant]
     Active Substance: DEXAMETHASONE
  21. PHENYLEPHRINE [Concomitant]
     Active Substance: PHENYLEPHRINE HYDROCHLORIDE
  22. SENNA [SENNOSIDE A+B] [Concomitant]
     Active Substance: SENNOSIDES A AND B
  23. AVAPRO [Concomitant]
     Active Substance: IRBESARTAN
  24. GLUCAGON. [Concomitant]
     Active Substance: GLUCAGON
  25. GUAIFENESIN/CODEINE [Concomitant]
     Active Substance: CODEINE PHOSPHATE\GUAIFENESIN
  26. ATORVASTATIN [Concomitant]
     Active Substance: ATORVASTATIN
     Dosage: 10 MG
     Route: 048
     Dates: start: 20200910, end: 20200912
  27. HALDOL [Concomitant]
     Active Substance: HALOPERIDOL
  28. METFORMIN [Concomitant]
     Active Substance: METFORMIN HYDROCHLORIDE
  29. VERSED [Concomitant]
     Active Substance: MIDAZOLAM HYDROCHLORIDE
  30. ATIVAN [Concomitant]
     Active Substance: LORAZEPAM
  31. NIMBEX [NIMESULIDE] [Concomitant]
     Active Substance: NIMESULIDE
  32. DEXTROSE. [Concomitant]
     Active Substance: DEXTROSE
  33. PEPCID [Concomitant]
     Active Substance: FAMOTIDINE
  34. MORPHINE [Concomitant]
     Active Substance: MORPHINE
  35. ROCURONIUM [Concomitant]
     Active Substance: ROCURONIUM BROMIDE
  36. ZINC. [Concomitant]
     Active Substance: ZINC

REACTIONS (9)
  - COVID-19 [Fatal]
  - Hypovolaemia [Not Recovered/Not Resolved]
  - Multiple organ dysfunction syndrome [Fatal]
  - Acute kidney injury [Fatal]
  - Hypoxia [Not Recovered/Not Resolved]
  - Hepatotoxicity [Unknown]
  - Hypotension [Not Recovered/Not Resolved]
  - Thrombosis [Not Recovered/Not Resolved]
  - General physical health deterioration [Not Recovered/Not Resolved]

NARRATIVE: CASE EVENT DATE: 202009
